FAERS Safety Report 8531952-6 (Version None)
Quarter: 2012Q3

REPORT INFORMATION
  Report Type: 
  Country: None (occurrence: None)
  Receive Date: 20120723
  Receipt Date: 20120720
  Transmission Date: 20120928
  Serious: Yes (Other)
  Sender: FDA-Public Use
  Company Number: US-GLAXOSMITHKLINE-A0985452A

PATIENT
  Age: 67 Year
  Sex: Female

DRUGS (1)
  1. NICOTINE [Suspect]
     Indication: SMOKING CESSATION THERAPY
     Route: 062
     Dates: start: 20120717, end: 20120719

REACTIONS (5)
  - FEELING ABNORMAL [None]
  - DISTURBANCE IN ATTENTION [None]
  - APPLICATION SITE PRURITUS [None]
  - FEAR [None]
  - HALLUCINATION [None]
